FAERS Safety Report 22134714 (Version 6)
Quarter: 2024Q4

REPORT INFORMATION
  Report Type: Report from Study
  Country: SA (occurrence: SA)
  Receive Date: 20230324
  Receipt Date: 20241030
  Transmission Date: 20250115
  Serious: Yes (Hospitalization)
  Sender: GLAXOSMITHKLINE
  Company Number: SA-GLAXOSMITHKLINE-SA2023EME020345

PATIENT

DRUGS (2)
  1. BELIMUMAB [Suspect]
     Active Substance: BELIMUMAB
     Indication: Systemic lupus erythematosus
     Dosage: 200 MG, WE
     Dates: start: 20221209
  2. BELIMUMAB [Suspect]
     Active Substance: BELIMUMAB
     Indication: Systemic lupus erythematosus
     Dosage: 10 MG/KG, MO
     Route: 042
     Dates: start: 20241022

REACTIONS (18)
  - Pain in extremity [Unknown]
  - Back pain [Unknown]
  - Movement disorder [Unknown]
  - Pyrexia [Unknown]
  - Blood glucose increased [Unknown]
  - Headache [Recovered/Resolved]
  - Abdominal pain [Unknown]
  - Alopecia [Unknown]
  - Fatigue [Unknown]
  - Arthralgia [Unknown]
  - Feeling hot [Not Recovered/Not Resolved]
  - Lethargy [Unknown]
  - Mood altered [Unknown]
  - Joint swelling [Unknown]
  - Dizziness [Not Recovered/Not Resolved]
  - Gait inability [Unknown]
  - Injection site discolouration [Not Recovered/Not Resolved]
  - Inappropriate schedule of product administration [Unknown]

NARRATIVE: CASE EVENT DATE: 20230217
